FAERS Safety Report 8573854-5 (Version None)
Quarter: 2012Q3

REPORT INFORMATION
  Report Type: 
  Country: None (occurrence: None)
  Receive Date: 20120806
  Receipt Date: 20111111
  Transmission Date: 20120928
  Serious: No
  Sender: FDA-Public Use
  Company Number: US-GLAXOSMITHKLINE-A0952805A

PATIENT
  Age: 55 Year
  Sex: Male

DRUGS (5)
  1. COUGH DROPS [Concomitant]
  2. METFORMIN HYDROCHLORIDE [Concomitant]
  3. FLUTICASONE PROPIONATE [Suspect]
     Indication: CHRONIC OBSTRUCTIVE PULMONARY DISEASE
     Route: 055
  4. ALAVERT [Concomitant]
  5. GLUCOPHAGE [Concomitant]

REACTIONS (1)
  - BREATH ODOUR [None]
